FAERS Safety Report 10186771 (Version 1)
Quarter: 2014Q2

REPORT INFORMATION
  Report Type: Report from Study
  Country: AR (occurrence: AR)
  Receive Date: 20140521
  Receipt Date: 20140521
  Transmission Date: 20141212
  Serious: Yes (Other)
  Sender: FDA-Public Use
  Company Number: PHHY2014AR061054

PATIENT
  Sex: Female

DRUGS (4)
  1. DIOVAN [Suspect]
     Indication: HYPERTENSION
     Dosage: 1 TABLET (80 MG), DAILY
     Route: 048
     Dates: start: 2001
  2. DIOVAN [Suspect]
     Dosage: 1 TABLET (160 MG), DAILY
     Route: 048
  3. DIOVAN [Suspect]
     Dosage: 1 TABLET (320 MG), DAILY
     Route: 048
  4. DIOVAN D [Suspect]
     Indication: HYPERTENSION
     Dosage: 1 TABLET (160/12.5 MG), DAILY
     Route: 048

REACTIONS (3)
  - Breast neoplasm [Recovering/Resolving]
  - Blood pressure increased [Recovered/Resolved]
  - Blood pressure inadequately controlled [Unknown]
